FAERS Safety Report 5428194-X (Version None)
Quarter: 2007Q3

REPORT INFORMATION
  Report Type: 
  Country: None (occurrence: None)
  Receive Date: 20070828
  Receipt Date: 20070816
  Transmission Date: 20080115
  Serious: Yes (Other)
  Sender: FDA-Public Use
  Company Number: US-PFIZER INC-2007068900

PATIENT
  Sex: Female
  Weight: 93.4 kg

DRUGS (16)
  1. CHANTIX [Suspect]
     Indication: SMOKING CESSATION THERAPY
  2. OMEPRAZOLE [Concomitant]
  3. VYTORIN [Concomitant]
  4. MONTELUKAST SODIUM [Concomitant]
  5. TRAZODONE HCL [Concomitant]
  6. METFORMIN HCL [Concomitant]
  7. CYCLOBENZAPRINE HCL [Concomitant]
  8. MAGNESIUM OXIDE [Concomitant]
  9. LEVOTHYROXINE SODIUM [Concomitant]
  10. ADVAIR DISKUS 100/50 [Concomitant]
  11. SPIRONOLACTONE [Concomitant]
  12. KLOR-CON [Concomitant]
  13. FUROSEMIDE [Concomitant]
  14. ASPIRIN [Concomitant]
  15. VITAMIN CAP [Concomitant]
  16. CALCIUM [Concomitant]

REACTIONS (3)
  - MOVEMENT DISORDER [None]
  - SLUGGISHNESS [None]
  - SOMNOLENCE [None]
